FAERS Safety Report 23829859 (Version 1)
Quarter: 2024Q2

REPORT INFORMATION
  Report Type: Report from Study
  Country: AU (occurrence: AU)
  Receive Date: 20240508
  Receipt Date: 20240508
  Transmission Date: 20240715
  Serious: Yes (Other)
  Sender: FDA-Public Use
  Company Number: AU-SA-SAC20240503000250

PATIENT
  Age: 38 Year
  Sex: Female

DRUGS (12)
  1. OXALIPLATIN [Suspect]
     Active Substance: OXALIPLATIN
     Indication: Colorectal cancer metastatic
     Dosage: 156 MG, QCY
     Route: 042
     Dates: start: 20210127, end: 20210512
  2. ENCORAFENIB [Suspect]
     Active Substance: ENCORAFENIB
     Indication: Colorectal cancer metastatic
     Dosage: 300 MG, QD
     Route: 048
     Dates: start: 20210127
  3. CETUXIMAB [Suspect]
     Active Substance: CETUXIMAB
     Indication: Colorectal cancer metastatic
     Dosage: 920 MG, QCY
     Route: 042
     Dates: start: 20210127
  4. FLUOROURACIL [Suspect]
     Active Substance: FLUOROURACIL
     Dosage: 736 MG, QCY
     Route: 042
     Dates: start: 20210127, end: 20210512
  5. FLUOROURACIL [Suspect]
     Active Substance: FLUOROURACIL
     Dosage: 4416 MG, QCY
     Route: 042
     Dates: start: 20210127, end: 20210512
  6. LEUCOVORIN CALCIUM [Suspect]
     Active Substance: LEUCOVORIN CALCIUM
     Indication: Colorectal cancer
     Dosage: 736 MG, QCY
     Route: 042
     Dates: start: 20210127, end: 20210512
  7. OXYCODONE HYDROCHLORIDE [Concomitant]
     Active Substance: OXYCODONE HYDROCHLORIDE
     Indication: Abdominal pain
     Dosage: 5 MG
     Route: 048
     Dates: start: 20210118
  8. OXYCONTIN [Concomitant]
     Active Substance: OXYCODONE HYDROCHLORIDE
     Indication: Abdominal pain
     Dosage: 10 MG, QD
     Route: 048
     Dates: start: 20190124
  9. DOCUSATE SODIUM\SENNOSIDES A AND B [Concomitant]
     Active Substance: DOCUSATE SODIUM\SENNOSIDES A AND B
     Indication: Constipation
     Dosage: 4 DF, QD
     Route: 048
     Dates: start: 20210112
  10. ONDANSETRON [Concomitant]
     Active Substance: ONDANSETRON
     Indication: Nausea
     Dosage: 12 MG, QD
     Route: 048
     Dates: start: 20201229, end: 20210106
  11. PANTOPRAZOLE SODIUM [Concomitant]
     Active Substance: PANTOPRAZOLE SODIUM
     Indication: Gastrooesophageal reflux disease
     Dosage: 40 MG, QD
     Route: 048
     Dates: start: 20201116
  12. SERTRALINE HYDROCHLORIDE [Concomitant]
     Active Substance: SERTRALINE HYDROCHLORIDE
     Indication: Depression
     Dosage: 50 MG, QD
     Route: 048
     Dates: start: 20190607

REACTIONS (2)
  - Klebsiella test positive [Recovered/Resolved]
  - Pyrexia [Recovered/Resolved]

NARRATIVE: CASE EVENT DATE: 20210206
